FAERS Safety Report 25299978 (Version 1)
Quarter: 2025Q2

REPORT INFORMATION
  Report Type: Spontaneous
  Country: US (occurrence: None)
  Receive Date: 20250510
  Receipt Date: 20250510
  Transmission Date: 20250717
  Serious: Yes (Hospitalization, Disabling)
  Sender: FDA-CTU
  Company Number: None

PATIENT
  Age: 29 Year
  Sex: Female
  Weight: 56.25 kg

DRUGS (24)
  1. CIPROFLOXACIN [Suspect]
     Active Substance: CIPROFLOXACIN
     Indication: Urinary tract infection
     Dates: start: 20241210, end: 20241213
  2. GABAPENTIN [Concomitant]
     Active Substance: GABAPENTIN
  3. sprintec, [Concomitant]
  4. XANAX [Concomitant]
     Active Substance: ALPRAZOLAM
  5. Zyrtec, [Concomitant]
  6. pepcid, [Concomitant]
  7. multi vitamin, [Concomitant]
  8. coq10, [Concomitant]
  9. probiotics, [Concomitant]
  10. glutathione, [Concomitant]
  11. colostrum, [Concomitant]
  12. zinc, [Concomitant]
  13. magnesium glycinate, [Concomitant]
  14. vit c, [Concomitant]
  15. vit d, [Concomitant]
  16. rutin, [Concomitant]
  17. luteolin, [Concomitant]
  18. quercetin, [Concomitant]
  19. DAO, [Concomitant]
  20. magnesium threonate, [Concomitant]
  21. lavender pill, [Concomitant]
  22. ashwaganda, [Concomitant]
  23. collagen, [Concomitant]
  24. CREATINE [Concomitant]
     Active Substance: CREATINE

REACTIONS (15)
  - Panic attack [None]
  - Mast cell activation syndrome [None]
  - Postural orthostatic tachycardia syndrome [None]
  - Neuropathy peripheral [None]
  - Muscular weakness [None]
  - Arthralgia [None]
  - Tremor [None]
  - Ageusia [None]
  - Anosmia [None]
  - Tinnitus [None]
  - Amnesia [None]
  - Food allergy [None]
  - Gait disturbance [None]
  - Serum ferritin decreased [None]
  - Pain [None]

NARRATIVE: CASE EVENT DATE: 20241210
